FAERS Safety Report 7703621-3 (Version None)
Quarter: 2011Q3

REPORT INFORMATION
  Report Type: 
  Country: None (occurrence: None)
  Receive Date: 20110823
  Receipt Date: 20110818
  Transmission Date: 20111222
  Serious: Yes (Death)
  Sender: FDA-Public Use
  Company Number: PHHY2011EC74740

PATIENT

DRUGS (1)
  1. TRILEPTAL [Suspect]
     Dosage: 900 MG, DAILY MATERNAL DOSE
     Route: 064

REACTIONS (2)
  - INTRA-UTERINE DEATH [None]
  - MATERNAL EXPOSURE DURING PREGNANCY [None]
